FAERS Safety Report 10207385 (Version 2)
Quarter: 2014Q2

REPORT INFORMATION
  Report Type: Spontaneous
  Country: DE (occurrence: DE)
  Receive Date: 20140530
  Receipt Date: 20140530
  Transmission Date: 20141212
  Serious: Yes (Hospitalization)
  Sender: FDA-Public Use
  Company Number: DE-CELGENEUS-062-POMAL-14042147

PATIENT
  Age: 40 Year
  Sex: Male

DRUGS (3)
  1. IMNOVID [Suspect]
     Indication: PLASMA CELL MYELOMA
     Route: 048
  2. AZITHROMYCIN [Concomitant]
     Indication: PRODUCT USED FOR UNKNOWN INDICATION
     Route: 048
  3. DEXAMETHASONE [Concomitant]
     Indication: PRODUCT USED FOR UNKNOWN INDICATION
     Route: 065

REACTIONS (3)
  - Atelectasis [Unknown]
  - Cough [Unknown]
  - Muscle spasticity [Unknown]
